FAERS Safety Report 9318073 (Version 1)
Quarter: 2013Q2

REPORT INFORMATION
  Report Type: Spontaneous
  Country: US (occurrence: US)
  Receive Date: 20130530
  Receipt Date: 20130530
  Transmission Date: 20140414
  Serious: No
  Sender: FDA-Public Use
  Company Number: US-GLAXOSMITHKLINE-A1003403A

PATIENT
  Sex: Female

DRUGS (4)
  1. VENTOLIN [Suspect]
     Indication: ASTHMA
     Route: 055
  2. THEO-24 [Concomitant]
  3. ACCOLATE [Concomitant]
  4. ZYRTEC [Concomitant]

REACTIONS (8)
  - Wheezing [Unknown]
  - Cough [Unknown]
  - Hypersensitivity [Unknown]
  - Nasopharyngitis [Unknown]
  - Product quality issue [Unknown]
  - Cardiac discomfort [Unknown]
  - Heart rate increased [Not Recovered/Not Resolved]
  - Drug effect decreased [Unknown]
